FAERS Safety Report 5699726-1 (Version None)
Quarter: 2008Q2

REPORT INFORMATION
  Report Type: 
  Country: None (occurrence: None)
  Receive Date: 20080410
  Receipt Date: 20080331
  Transmission Date: 20081010
  Serious: Yes (Other)
  Sender: FDA-Public Use
  Company Number: PHHY2008IL04291

PATIENT
  Age: 40 Year
  Sex: Female

DRUGS (1)
  1. GENTEAL GEL (NVO) [Suspect]

REACTIONS (4)
  - EYE INFLAMMATION [None]
  - EYE IRRITATION [None]
  - EYE PAIN [None]
  - OCULAR HYPERAEMIA [None]
